FAERS Safety Report 24217668 (Version 1)
Quarter: 2024Q3

REPORT INFORMATION
  Report Type: Spontaneous
  Country: US (occurrence: US)
  Receive Date: 20240816
  Receipt Date: 20240816
  Transmission Date: 20241016
  Serious: No
  Sender: INSUD PHARMA
  Company Number: US-INSUD PHARMA-2408US06255

PATIENT

DRUGS (2)
  1. SLYND [Suspect]
     Active Substance: DROSPIRENONE
     Indication: Product used for unknown indication
     Dosage: DOUBLE HER DOSE
     Route: 048
  2. SLYND [Suspect]
     Active Substance: DROSPIRENONE
     Dosage: UNKNOWN
     Route: 048

REACTIONS (6)
  - Pyrexia [Recovering/Resolving]
  - Chills [Recovering/Resolving]
  - Erythema [Recovering/Resolving]
  - Breast pain [Recovering/Resolving]
  - Breast tenderness [Recovering/Resolving]
  - Intentional product use issue [Unknown]

NARRATIVE: CASE EVENT DATE: 20240701
